FAERS Safety Report 13703508 (Version 2)
Quarter: 2017Q3

REPORT INFORMATION
  Report Type: Report from Study
  Country: US (occurrence: US)
  Receive Date: 20170629
  Receipt Date: 20170710
  Transmission Date: 20171127
  Serious: Yes (Other)
  Sender: FDA-Public Use
  Company Number: US-GILEAD-2017-0280205

PATIENT
  Age: 57 Year
  Sex: Male

DRUGS (2)
  1. SOVALDI [Concomitant]
     Active Substance: SOFOSBUVIR
  2. LEDIPASVIR/SOFOSBUVIR [Suspect]
     Active Substance: LEDIPASVIR\SOFOSBUVIR
     Indication: CHRONIC HEPATITIS C
     Dosage: 1 DF, UNK
     Route: 048

REACTIONS (4)
  - Road traffic accident [Recovered/Resolved]
  - Drug ineffective [Unknown]
  - Hepatitis C [Unknown]
  - Amnesia [Unknown]
